FAERS Safety Report 4578760-9 (Version None)
Quarter: 2005Q1

REPORT INFORMATION
  Report Type: 
  Country: None (occurrence: None)
  Receive Date: 20050209
  Receipt Date: 20050209
  Transmission Date: 20050727
  Serious: Yes (Other)
  Sender: FDA-Public Use
  Company Number: None

PATIENT
  Age: 2 Year
  Sex: Male
  Weight: 13.6 kg

DRUGS (2)
  1. AUGMENTIN '400' [Suspect]
     Indication: OTITIS MEDIA ACUTE
     Dosage: 1 TSP BID PO
     Route: 048
     Dates: start: 20050131, end: 20050208
  2. TYLENOL [Concomitant]

REACTIONS (1)
  - RASH MACULO-PAPULAR [None]
